FAERS Safety Report 20176677 (Version 1)
Quarter: 2021Q4

REPORT INFORMATION
  Report Type: Spontaneous
  Country: US (occurrence: None)
  Receive Date: 20211209
  Receipt Date: 20211209
  Transmission Date: 20220303
  Serious: No
  Sender: FDA-Public Use
  Company Number: None

PATIENT
  Age: 74 Year
  Sex: Female

DRUGS (6)
  1. IVERMECTIN [Suspect]
     Active Substance: IVERMECTIN
  2. QUERCETIN [Concomitant]
     Active Substance: QUERCETIN
  3. ZINC [Concomitant]
     Active Substance: ZINC
  4. VITAMIN C [Concomitant]
     Active Substance: ASCORBIC ACID
  5. VITAMIN D [Concomitant]
     Active Substance: VITAMIN D NOS
  6. METFORMIN [Concomitant]
     Active Substance: METFORMIN HYDROCHLORIDE

REACTIONS (28)
  - Electrocardiogram QRS complex prolonged [None]
  - Electrocardiogram QT prolonged [None]
  - Cardiovascular disorder [None]
  - Tachycardia [None]
  - Troponin increased [None]
  - Diarrhoea [None]
  - Nausea [None]
  - Aspartate aminotransferase increased [None]
  - Alanine aminotransferase increased [None]
  - Anion gap increased [None]
  - Electrolyte imbalance [None]
  - Hyperglycaemia [None]
  - Dizziness [None]
  - Vertigo [None]
  - Muscular weakness [None]
  - Nervous system disorder [None]
  - Syncope [None]
  - Hyperventilation [None]
  - Tachypnoea [None]
  - Respiratory disorder [None]
  - Respiratory depression [None]
  - X-ray abnormal [None]
  - Fatigue [None]
  - Sepsis [None]
  - Self-medication [None]
  - Hypoxia [None]
  - Blood glucose increased [None]
  - Pulmonary embolism [None]
